FAERS Safety Report 21079018 (Version 2)
Quarter: 2022Q3

REPORT INFORMATION
  Report Type: Report from Study
  Country: KR (occurrence: KR)
  Receive Date: 20220713
  Receipt Date: 20220801
  Transmission Date: 20221027
  Serious: Yes (Life-Threatening, Hospitalization, Other)
  Sender: FDA-Public Use
  Company Number: KR-ABBVIE-22K-090-4465991-00

PATIENT
  Sex: Female
  Weight: 70 kg

DRUGS (28)
  1. RINVOQ [Suspect]
     Active Substance: UPADACITINIB
     Indication: Rheumatoid arthritis
     Route: 048
     Dates: start: 20220329, end: 20220418
  2. RHEUMATREX [Concomitant]
     Active Substance: METHOTREXATE SODIUM
     Indication: Rheumatoid arthritis
     Dosage: FOLEX
     Dates: start: 20160203, end: 20160410
  3. RHEUMATREX [Concomitant]
     Active Substance: METHOTREXATE SODIUM
     Dates: start: 20160411, end: 20160425
  4. RHEUMATREX [Concomitant]
     Active Substance: METHOTREXATE SODIUM
     Dates: start: 20160426, end: 20160829
  5. RHEUMATREX [Concomitant]
     Active Substance: METHOTREXATE SODIUM
     Dates: start: 20211004
  6. METHOTREXATE KOREAUNITED [Concomitant]
     Indication: Rheumatoid arthritis
     Route: 048
     Dates: start: 20211004
  7. OLMESARTAN MEDOXOMIL [Concomitant]
     Active Substance: OLMESARTAN MEDOXOMIL
     Indication: Hypertension
     Route: 048
     Dates: start: 20220214
  8. URSODIOL [Concomitant]
     Active Substance: URSODIOL
     Indication: Liver function test increased
     Route: 048
     Dates: start: 20211101
  9. STO Q [Concomitant]
     Indication: Prophylaxis against gastrointestinal ulcer
     Route: 048
     Dates: start: 20211004
  10. VESICARE [Concomitant]
     Active Substance: SOLIFENACIN SUCCINATE
     Indication: Urinary tract infection
     Route: 048
     Dates: start: 20220329
  11. ENTELON [Concomitant]
     Indication: Radius fracture
     Route: 048
     Dates: start: 20210915
  12. TRACINONE [Concomitant]
     Indication: Rheumatoid arthritis
     Route: 048
     Dates: start: 20211004
  13. CIPOL-N [Concomitant]
     Indication: Rheumatoid arthritis
     Dosage: SC
     Route: 048
     Dates: start: 20211227
  14. FOLIC ACID [Concomitant]
     Active Substance: FOLIC ACID
     Indication: Prophylaxis
     Dosage: SINIL
     Route: 048
     Dates: start: 20170213
  15. BEECOM HEXA [Concomitant]
     Indication: Vitamin supplementation
     Route: 042
     Dates: start: 20220329, end: 20220329
  16. BEECOM HEXA [Concomitant]
     Route: 042
     Dates: start: 20220412, end: 20220412
  17. BEECOM HEXA [Concomitant]
     Route: 042
     Dates: start: 20220418, end: 20220418
  18. JEIL ASCORBIC ACID [Concomitant]
     Indication: Vitamin supplementation
     Route: 042
     Dates: start: 20220329, end: 20220329
  19. JEIL ASCORBIC ACID [Concomitant]
     Route: 042
     Dates: start: 20220412, end: 20220412
  20. JEIL ASCORBIC ACID [Concomitant]
     Route: 042
     Dates: start: 20220418, end: 20220418
  21. HEPA MERZ 3000 [Concomitant]
     Indication: Liver function test increased
     Dosage: 500MG/5ML
     Route: 042
     Dates: start: 20220412, end: 20220412
  22. HEPA MERZ 3000 [Concomitant]
     Route: 042
     Dates: start: 20220418, end: 20220418
  23. DIETARY SUPPLEMENT\HERBALS\MILK THISTLE [Concomitant]
     Active Substance: DIETARY SUPPLEMENT\HERBALS\MILK THISTLE
     Indication: Liver function test increased
     Dosage: 40
     Route: 048
     Dates: start: 20220412
  24. LIDOCAINE HCL HUONS [Concomitant]
     Indication: Spinal compression fracture
     Dosage: 1 PERCENT 2 ML
     Route: 024
     Dates: start: 20220413, end: 20220413
  25. DEXAMETHASONE DAEWON [Concomitant]
     Indication: Spinal compression fracture
     Route: 024
     Dates: start: 20220413, end: 20220413
  26. KEROMIN [Concomitant]
     Indication: Rheumatoid arthritis
     Route: 042
     Dates: start: 20220418, end: 20220418
  27. K AXONE [Concomitant]
     Indication: Urinary tract infection
     Dosage: 1 VIAL
     Route: 042
     Dates: start: 20220418, end: 20220418
  28. BROPIUM [Concomitant]
     Indication: Gastrointestinal disorder prophylaxis
     Route: 042
     Dates: start: 20220418, end: 20220418

REACTIONS (3)
  - Pyelonephritis acute [Recovered/Resolved]
  - Asthenia [Recovered/Resolved]
  - Sepsis [Recovered/Resolved]

NARRATIVE: CASE EVENT DATE: 20220401
